FAERS Safety Report 4273247-5 (Version None)
Quarter: 2004Q1

REPORT INFORMATION
  Report Type: 
  Country: None (occurrence: None)
  Receive Date: 20040116
  Receipt Date: 20031218
  Transmission Date: 20041129
  Serious: Yes (Hospitalization)
  Sender: FDA-Public Use
  Company Number: SE-ROCHE-354432

PATIENT
  Age: 54 Year
  Sex: Male

DRUGS (20)
  1. CELLCEPT [Suspect]
     Indication: IMMUNOSUPPRESSION
     Route: 048
     Dates: start: 20010615
  2. PREDNISOLONE [Suspect]
     Indication: DRUG USE FOR UNKNOWN INDICATION
     Route: 048
  3. ARANESP [Concomitant]
  4. SELOKEN ZOC [Concomitant]
  5. NORVASC [Concomitant]
  6. STILNOCT [Concomitant]
  7. FOLACIN [Concomitant]
  8. ALVEDON [Concomitant]
  9. MULTIVITAMIN [Concomitant]
     Dosage: DRUG NAME REPORTED AS ORALVITE.
  10. BEHEPAN [Concomitant]
  11. TAVEGYL [Concomitant]
  12. NATRIUM BICARBONAT [Concomitant]
  13. KININ [Concomitant]
  14. KALCITENA [Concomitant]
     Dosage: CHEWABLE TABLET.
  15. INNOHEP [Concomitant]
     Dosage: STRENGTH: 10000 IE/ ML.
  16. ETALPHA [Concomitant]
  17. LANSOPRAZOLE [Concomitant]
  18. DIMOR [Concomitant]
  19. KETODUR [Concomitant]
  20. ALFADIL [Concomitant]

REACTIONS (5)
  - ABSCESS SOFT TISSUE [None]
  - DISCOMFORT [None]
  - FISTULA [None]
  - IMPAIRED HEALING [None]
  - NECROSIS [None]
